FAERS Safety Report 17824109 (Version 1)
Quarter: 2020Q2

REPORT INFORMATION
  Report Type: Spontaneous
  Country: CN (occurrence: CN)
  Receive Date: 20200526
  Receipt Date: 20200526
  Transmission Date: 20200714
  Serious: Yes (Death, Hospitalization)
  Sender: FDA-Public Use
  Company Number: CN-PFIZER INC-2011SE03540

PATIENT
  Age: 88 Year
  Sex: Male

DRUGS (1)
  1. MEROPENEM. [Suspect]
     Active Substance: MEROPENEM
     Dosage: 2 G, 3X/DAY
     Route: 042
     Dates: start: 200611

REACTIONS (2)
  - Multiple organ dysfunction syndrome [Fatal]
  - Dermatitis exfoliative [Fatal]

NARRATIVE: CASE EVENT DATE: 200611
